FAERS Safety Report 13164262 (Version 2)
Quarter: 2017Q1

REPORT INFORMATION
  Report Type: Spontaneous
  Country: BR (occurrence: BR)
  Receive Date: 20170130
  Receipt Date: 20170206
  Transmission Date: 20170428
  Serious: Yes (Hospitalization)
  Sender: FDA-Public Use
  Company Number: BR-JNJFOC-20170124035

PATIENT
  Age: 19 Year
  Sex: Female

DRUGS (1)
  1. ORTHO EVRA [Suspect]
     Active Substance: ETHINYL ESTRADIOL\NORELGESTROMIN
     Indication: AMENORRHOEA
     Route: 065

REACTIONS (5)
  - Amenorrhoea [Unknown]
  - Therapeutic response unexpected [Unknown]
  - Hospitalisation [Unknown]
  - Off label use [Unknown]
  - Product use issue [Unknown]
